FAERS Safety Report 5521575-5 (Version None)
Quarter: 2007Q4

REPORT INFORMATION
  Report Type: 
  Country: None (occurrence: None)
  Receive Date: 20071115
  Receipt Date: 20071102
  Transmission Date: 20080405
  Serious: Yes (Hospitalization)
  Sender: FDA-Public Use
  Company Number: 310003L07TWN

PATIENT
  Age: 35 Year
  Sex: Female

DRUGS (4)
  1. FOLLITROPIN ALPHA (FOLLICLE STIMULATING HORMONE, RECOMBINANT) [Suspect]
     Indication: OVULATION INDUCTION
     Dosage: 225 IU, 1 IN 1 DAYS
  2. MENOTROPINS [Suspect]
     Indication: OVULATION INDUCTION
     Dosage: 150 IU, 1 IN 1 DAYS
  3. CHORIONIC GONADOTROPIN [Suspect]
     Indication: OVULATION INDUCTION
     Dosage: ORAL
     Route: 048
  4. ESTROGENS, COMBINATIONS WITH OTHER DRUGS [Concomitant]

REACTIONS (2)
  - DRUG EXPOSURE DURING PREGNANCY [None]
  - PLEURAL EFFUSION [None]
